FAERS Safety Report 8110755-0 (Version None)
Quarter: 2012Q1

REPORT INFORMATION
  Report Type: 
  Country: None (occurrence: None)
  Receive Date: 20120203
  Receipt Date: 20111101
  Transmission Date: 20120608
  Serious: No
  Sender: FDA-Public Use
  Company Number: US-GLAXOSMITHKLINE-A0952048A

PATIENT
  Age: 68 Year
  Sex: Female

DRUGS (2)
  1. HORIZANT [Suspect]
     Indication: RESTLESS LEGS SYNDROME
     Dosage: 600MG UNKNOWN
     Route: 048
  2. UNKNOWN [Concomitant]

REACTIONS (1)
  - PRURITUS [None]
